FAERS Safety Report 21112315 (Version 1)
Quarter: 2022Q3

REPORT INFORMATION
  Report Type: Spontaneous
  Country: US (occurrence: None)
  Receive Date: 20220721
  Receipt Date: 20220721
  Transmission Date: 20221026
  Serious: No
  Sender: FDA-Public Use
  Company Number: None

PATIENT
  Age: 49 Year
  Sex: Male

DRUGS (1)
  1. MOLNUPIRAVIR [Suspect]
     Active Substance: MOLNUPIRAVIR
     Indication: COVID-19
     Dosage: FREQUENCY : AT BEDTIME;?
     Route: 048
     Dates: start: 20220707

REACTIONS (2)
  - Abdominal pain lower [None]
  - Diarrhoea [None]

NARRATIVE: CASE EVENT DATE: 20220710
